FAERS Safety Report 4270451-7 (Version None)
Quarter: 2004Q1

REPORT INFORMATION
  Report Type: 
  Country: None (occurrence: None)
  Receive Date: 20040114
  Receipt Date: 20040112
  Transmission Date: 20041129
  Serious: Yes (Death)
  Sender: FDA-Public Use
  Company Number: US-GLAXOSMITHKLINE-A0492706A

PATIENT
  Age: 14 Year
  Sex: Male

DRUGS (1)
  1. PAXIL [Suspect]
     Indication: ILL-DEFINED DISORDER
     Route: 048
     Dates: end: 20020122

REACTIONS (1)
  - COMPLETED SUICIDE [None]
